FAERS Safety Report 8884382 (Version 1)
Quarter: 2012Q4

REPORT INFORMATION
  Report Type: 
  Country: US (occurrence: US)
  Receive Date: 20121102
  Receipt Date: 20121102
  Transmission Date: 20130627
  Serious: No
  Sender: FDA-Public Use
  Company Number: US-ASTRAZENECA-2012SE22494

PATIENT
  Age: 68 Year
  Sex: Male
  Weight: 83.9 kg

DRUGS (4)
  1. CRESTOR [Suspect]
     Indication: HYPERCHOLESTEROLAEMIA
     Route: 048
     Dates: start: 2009
  2. METOPROLOL TARTRATE [Concomitant]
     Indication: BLOOD PRESSURE FLUCTUATION
  3. LISINOPRIL [Concomitant]
     Indication: BLOOD PRESSURE FLUCTUATION
  4. AMLODIPINE BESYLATE [Concomitant]
     Indication: BLOOD PRESSURE ABNORMAL

REACTIONS (4)
  - Alopecia [Unknown]
  - Erectile dysfunction [Unknown]
  - Anorgasmia [Unknown]
  - Rash [Unknown]
